FAERS Safety Report 5872711-2 (Version None)
Quarter: 2008Q3

REPORT INFORMATION
  Report Type: 
  Country: None (occurrence: None)
  Receive Date: 20080905
  Receipt Date: 20080829
  Transmission Date: 20090109
  Serious: Yes (Life-Threatening)
  Sender: FDA-Public Use
  Company Number: US-GENENTECH-246910

PATIENT
  Age: 73 Year
  Sex: Male

DRUGS (3)
  1. ACTIVASE [Suspect]
     Indication: INTRAVENTRICULAR HAEMORRHAGE
     Dosage: 1 MG, Q8H
     Route: 050
  2. LISINOPRIL [Concomitant]
     Indication: DRUG USE FOR UNKNOWN INDICATION
     Dosage: 20 MG, UNK
  3. HERBS [Concomitant]
     Indication: DRUG USE FOR UNKNOWN INDICATION

REACTIONS (1)
  - INTRAVENTRICULAR HAEMORRHAGE [None]
